FAERS Safety Report 25064724 (Version 1)
Quarter: 2025Q1

REPORT INFORMATION
  Report Type: Spontaneous
  Country: CA (occurrence: CA)
  Receive Date: 20250311
  Receipt Date: 20250311
  Transmission Date: 20250409
  Serious: Yes (Hospitalization, Other)
  Sender: NOVO NORDISK
  Company Number: CA-NOVOPROD-1386963

PATIENT
  Sex: Male

DRUGS (2)
  1. OZEMPIC [Suspect]
     Active Substance: SEMAGLUTIDE
     Indication: Product used for unknown indication
  2. SKYRIZI [Concomitant]
     Active Substance: RISANKIZUMAB-RZAA
     Indication: Immunosuppression

REACTIONS (4)
  - Hypovolaemic shock [Unknown]
  - Septic shock [Unknown]
  - Bacterial colitis [Unknown]
  - Anaemia [Unknown]
